FAERS Safety Report 8232110-5 (Version None)
Quarter: 2012Q1

REPORT INFORMATION
  Report Type: 
  Country: None (occurrence: None)
  Receive Date: 20120323
  Receipt Date: 20120221
  Transmission Date: 20120608
  Serious: Yes (Hospitalization, Other)
  Sender: FDA-Public Use
  Company Number: US-ROCHE-1051531

PATIENT
  Sex: Female
  Weight: 77.18 kg

DRUGS (5)
  1. IRON [Concomitant]
  2. CELEBREX [Concomitant]
  3. ALBUTEROL [Concomitant]
  4. OMALIZUMAB [Suspect]
     Indication: ASTHMA
     Route: 058
     Dates: start: 20100401
  5. SYMBICORT [Concomitant]

REACTIONS (4)
  - SINUSITIS [None]
  - PARANASAL SINUS HYPERSECRETION [None]
  - PNEUMONIA [None]
  - OROPHARYNGEAL PAIN [None]
